FAERS Safety Report 9112985 (Version 1)
Quarter: 2013Q1

REPORT INFORMATION
  Report Type: Spontaneous
  Country: IE (occurrence: IE)
  Receive Date: 20130211
  Receipt Date: 20130211
  Transmission Date: 20140127
  Serious: Yes (Life-Threatening, Hospitalization, Other)
  Sender: FDA-Public Use
  Company Number: IE-ASTRAZENECA-2013SE08960

PATIENT
  Age: 119 Day
  Sex: Male

DRUGS (4)
  1. SYNAGIS [Suspect]
     Indication: HEART DISEASE CONGENITAL
     Route: 030
     Dates: start: 20121204
  2. SYNAGIS [Suspect]
     Indication: HEART DISEASE CONGENITAL
     Route: 030
     Dates: start: 20130102
  3. ASPIRIN [Concomitant]
  4. LOSEC [Concomitant]

REACTIONS (2)
  - Respiratory arrest [Recovering/Resolving]
  - Croup infectious [Recovering/Resolving]
